FAERS Safety Report 5099023-1 (Version None)
Quarter: 2006Q3

REPORT INFORMATION
  Report Type: 
  Country: None (occurrence: None)
  Receive Date: 20060731
  Receipt Date: 20051207
  Transmission Date: 20061208
  Serious: Yes (Death, Other)
  Sender: FDA-Public Use
  Company Number: 220201

PATIENT
  Age: 43 Year
  Sex: Male

DRUGS (3)
  1. RITUXAN [Suspect]
     Indication: THROMBOCYTOPENIC PURPURA
     Dosage: 375 MG/M2
  2. IMMUNE GLOBULIN INTRAVENOUS (HUMAN) [Concomitant]
  3. DANAZOL [Concomitant]

REACTIONS (1)
  - ACUTE RESPIRATORY DISTRESS SYNDROME [None]
